FAERS Safety Report 9237885 (Version 1)
Quarter: 2013Q1

REPORT INFORMATION
  Report Type: Spontaneous
  Country: US (occurrence: None)
  Receive Date: 20121031
  Receipt Date: 20121031
  Transmission Date: 20140127
  Serious: No
  Sender: FDA-Public Use
  Company Number: PHEH2012US014101

PATIENT
  Age: 37 Year
  Sex: Female

DRUGS (1)
  1. GILENYA (FTY)CAPSULE, 0.5MG [Suspect]
     Indication: MULTIPLE SCLEROSIS
     Route: 048
     Dates: start: 20120716

REACTIONS (5)
  - Feeling abnormal [None]
  - Sluggishness [None]
  - Crying [None]
  - Malaise [None]
  - Back pain [None]
